FAERS Safety Report 9209155 (Version 1)
Quarter: 2013Q2

REPORT INFORMATION
  Report Type: Spontaneous
  Country: US (occurrence: None)
  Receive Date: 20130403
  Receipt Date: 20130403
  Transmission Date: 20140414
  Serious: Yes (Disabling)
  Sender: FDA-Public Use
  Company Number: None

PATIENT
  Age: 21 Year
  Sex: Female
  Weight: 56.7 kg

DRUGS (1)
  1. ESCITALOPRAM 10 MG [Suspect]
     Indication: MAJOR DEPRESSION
     Dates: start: 201301

REACTIONS (2)
  - Therapeutic response unexpected with drug substitution [None]
  - Product quality issue [None]
